FAERS Safety Report 4653938-4 (Version None)
Quarter: 2005Q2

REPORT INFORMATION
  Report Type: 
  Country: None (occurrence: None)
  Receive Date: 20050404
  Receipt Date: 20041203
  Transmission Date: 20051028
  Serious: No
  Sender: FDA-Public Use
  Company Number: USA041285173

PATIENT
  Age: 41 Year
  Sex: Female

DRUGS (3)
  1. CYMBALTA [Suspect]
     Indication: DEPRESSION
     Dosage: 30 MG DAY
     Dates: start: 20041202, end: 20041203
  2. WELLBUTRIN [Concomitant]
  3. LAMICTAL [Concomitant]

REACTIONS (4)
  - FATIGUE [None]
  - INSOMNIA [None]
  - RESTLESSNESS [None]
  - VISUAL DISTURBANCE [None]
